FAERS Safety Report 7495294-2 (Version None)
Quarter: 2011Q2

REPORT INFORMATION
  Report Type: 
  Country: None (occurrence: None)
  Receive Date: 20110523
  Receipt Date: 20110516
  Transmission Date: 20111010
  Serious: Yes (Other)
  Sender: FDA-Public Use
  Company Number: NL-AMGEN-NLDSP2011025909

PATIENT
  Age: 48 Year
  Sex: Male

DRUGS (4)
  1. NAPROXEN [Concomitant]
     Dosage: UNK
  2. PANTOPRAZOLE [Concomitant]
     Dosage: UNK
  3. ENBREL [Suspect]
     Indication: PSORIATIC ARTHROPATHY
     Dosage: 50 MG, WEEKLY
     Dates: start: 20100218
  4. PREDNISONE [Concomitant]
     Dosage: 5 MG, UNK

REACTIONS (2)
  - PSORIASIS [None]
  - DYSPNOEA [None]
